FAERS Safety Report 11542807 (Version 1)
Quarter: 2015Q3

REPORT INFORMATION
  Report Type: Spontaneous
  Country: US (occurrence: US)
  Receive Date: 20150903
  Receipt Date: 20150903
  Transmission Date: 20151125
  Serious: No
  Sender: FDA-Public Use
  Company Number: US-ELI_LILLY_AND_COMPANY-US201205003311

PATIENT
  Sex: Female

DRUGS (5)
  1. PREVACID [Concomitant]
     Active Substance: LANSOPRAZOLE
     Indication: GASTROOESOPHAGEAL REFLUX DISEASE
  2. HUMALOG [Suspect]
     Active Substance: INSULIN LISPRO
     Indication: DIABETES MELLITUS
     Dosage: 21 U, BID
     Dates: start: 201203
  3. HUMALOG [Suspect]
     Active Substance: INSULIN LISPRO
     Dosage: 21 U, BID
     Dates: start: 201203
  4. HUMALOG [Suspect]
     Active Substance: INSULIN LISPRO
     Dosage: 51 U, EACH EVENING
     Dates: start: 201203
  5. HUMALOG [Suspect]
     Active Substance: INSULIN LISPRO
     Dosage: 51 U, EACH EVENING
     Dates: start: 201203

REACTIONS (5)
  - Abdominal distension [Unknown]
  - Visual acuity reduced [Unknown]
  - Weight increased [Unknown]
  - Abdominal discomfort [Unknown]
  - Gastrooesophageal reflux disease [Unknown]
